FAERS Safety Report 25074267 (Version 1)
Quarter: 2025Q1

REPORT INFORMATION
  Report Type: Other
  Country: US (occurrence: US)
  Receive Date: 20250313
  Receipt Date: 20250313
  Transmission Date: 20250409
  Serious: No
  Sender: WOODWARD PHARMA SERVICES
  Company Number: US-WW-2025-10041

PATIENT
  Age: 75 Year
  Sex: Male

DRUGS (3)
  1. FLUCONAZOLE [Suspect]
     Active Substance: FLUCONAZOLE
     Indication: Skin candida
     Route: 048
  2. MICONAZOLE [Suspect]
     Active Substance: MICONAZOLE
     Indication: Skin candida
     Route: 061
  3. CABOZANTINIB [Concomitant]
     Active Substance: CABOZANTINIB
     Route: 065

REACTIONS (2)
  - Condition aggravated [Recovered/Resolved]
  - Drug ineffective [Unknown]
